FAERS Safety Report 17899182 (Version 2)
Quarter: 2020Q2

REPORT INFORMATION
  Report Type: Spontaneous
  Country: US (occurrence: US)
  Receive Date: 20200616
  Receipt Date: 20200629
  Transmission Date: 20200714
  Serious: Yes (Other)
  Sender: FDA-Public Use
  Company Number: US-LUPIN PHARMACEUTICALS INC.-2019-05358

PATIENT
  Age: 74 Year
  Sex: Male
  Weight: 95.24 kg

DRUGS (2)
  1. DESLORATADINE TABLETS, 5 MG [Suspect]
     Active Substance: DESLORATADINE
     Indication: URTICARIA
     Dosage: 5 MILLIGRAM, QD
     Route: 048
     Dates: start: 20190810, end: 20190814
  2. DESLORATADINE TABLETS, 5 MG [Suspect]
     Active Substance: DESLORATADINE
     Indication: HYPERSENSITIVITY

REACTIONS (10)
  - Erythema [Recovered/Resolved]
  - Product substitution issue [Unknown]
  - Headache [Unknown]
  - Condition aggravated [Not Recovered/Not Resolved]
  - Muscle spasms [Recovered/Resolved]
  - Oropharyngeal pain [Recovered/Resolved]
  - Drug ineffective for unapproved indication [Unknown]
  - Urticaria [Not Recovered/Not Resolved]
  - Flushing [Recovered/Resolved]
  - Myalgia [Recovered/Resolved]

NARRATIVE: CASE EVENT DATE: 20190810
